FAERS Safety Report 25870104 (Version 2)
Quarter: 2025Q4

REPORT INFORMATION
  Report Type: Spontaneous
  Country: US (occurrence: None)
  Receive Date: 20251001
  Receipt Date: 20251110
  Transmission Date: 20260118
  Serious: Yes (Hospitalization, Other)
  Sender: UCB
  Company Number: US-UCBSA-2025053954

PATIENT
  Age: 53 Year
  Weight: 108.84 kg

DRUGS (1)
  1. CIMZIA [Suspect]
     Active Substance: CERTOLIZUMAB PEGOL
     Indication: Psoriasis
     Dosage: 200 MILLIGRAM, EV 2 WEEKS(QOW)

REACTIONS (5)
  - Osteonecrosis [Unknown]
  - Animal attack [Unknown]
  - Limb injury [Unknown]
  - Infection [Unknown]
  - Drug hypersensitivity [Unknown]
